FAERS Safety Report 8425573-3 (Version None)
Quarter: 2012Q2

REPORT INFORMATION
  Report Type: 
  Country: None (occurrence: None)
  Receive Date: 20120605
  Receipt Date: 20120605
  Transmission Date: 20120825
  Serious: Yes (Life-Threatening, Hospitalization, Disabling)
  Sender: FDA-Public Use
  Company Number: None

PATIENT
  Sex: Female
  Weight: 85.7298 kg

DRUGS (2)
  1. DARVOCET [Suspect]
     Indication: ARTHRALGIA
     Dosage: 2 DAILY 6 HRS
     Dates: start: 20030101, end: 20100101
  2. DARVOCET [Suspect]
     Indication: PAIN IN EXTREMITY
     Dosage: 2 DAILY 6 HRS
     Dates: start: 20030101, end: 20100101

REACTIONS (1)
  - CARDIAC OPERATION [None]
